FAERS Safety Report 6676628-5 (Version None)
Quarter: 2010Q2

REPORT INFORMATION
  Report Type: 
  Country: None (occurrence: None)
  Receive Date: 20100412
  Receipt Date: 20100401
  Transmission Date: 20101027
  Serious: Yes (Other)
  Sender: FDA-Public Use
  Company Number: PHHY2010CA20135

PATIENT
  Sex: Female

DRUGS (4)
  1. CLOZARIL [Suspect]
     Indication: SCHIZOPHRENIA
     Dosage: 25 MG, IN THE MORNING, 250 MG AT EVENING
     Dates: start: 20020502
  2. CLOZARIL [Suspect]
     Dosage: 75 MG, IN THE MORNING, 250 MG IN EVENING
  3. MANERIX [Concomitant]
  4. TOPAMAX [Concomitant]

REACTIONS (4)
  - HALLUCINATIONS, MIXED [None]
  - PARANOIA [None]
  - SCHIZOPHRENIA [None]
  - STRESS [None]
